FAERS Safety Report 22185946 (Version 1)
Quarter: 2023Q2

REPORT INFORMATION
  Report Type: Spontaneous
  Country: US (occurrence: None)
  Receive Date: 20230406
  Receipt Date: 20230406
  Transmission Date: 20230722
  Serious: Yes (Other)
  Sender: FDA-Public Use
  Company Number: None

PATIENT
  Age: 49 Year
  Sex: Female

DRUGS (1)
  1. TALTZ [Suspect]
     Active Substance: IXEKIZUMAB
     Indication: Drug therapy
     Dosage: FREQUENCY : MONTHLY;?
     Route: 058
     Dates: start: 20230303

REACTIONS (1)
  - Impaired healing [None]

NARRATIVE: CASE EVENT DATE: 20230307
